FAERS Safety Report 6553818-3 (Version None)
Quarter: 2010Q1

REPORT INFORMATION
  Report Type: 
  Country: None (occurrence: None)
  Receive Date: 20100127
  Receipt Date: 20100121
  Transmission Date: 20100710
  Serious: Yes (Other)
  Sender: FDA-Public Use
  Company Number: BR-ABBOTT-09P-020-0602184-00

PATIENT
  Sex: Female
  Weight: 54 kg

DRUGS (5)
  1. HUMIRA [Suspect]
     Indication: RHEUMATOID ARTHRITIS
     Route: 058
  2. LEFLUNOMIDE [Concomitant]
     Indication: PAIN
     Route: 048
     Dates: start: 20040101
  3. CLONIDINE [Concomitant]
     Indication: BLOOD PRESSURE MANAGEMENT
     Route: 048
  4. PROPRANOLOL [Concomitant]
     Indication: BLOOD PRESSURE MANAGEMENT
     Route: 048
  5. SPIRONOLACTONE [Concomitant]
     Indication: BLOOD PRESSURE MANAGEMENT
     Route: 048

REACTIONS (3)
  - BONE EROSION [None]
  - GAIT DISTURBANCE [None]
  - PAIN [None]
